FAERS Safety Report 5182146-6 (Version None)
Quarter: 2006Q4

REPORT INFORMATION
  Report Type: 
  Country: None (occurrence: None)
  Receive Date: 20061220
  Receipt Date: 20060601
  Transmission Date: 20070319
  Serious: No
  Sender: FDA-Public Use
  Company Number: US-GLAXOSMITHKLINE-A0607555A

PATIENT
  Age: 44 Year
  Sex: Female

DRUGS (1)
  1. COMMIT [Suspect]
     Dates: start: 20060516

REACTIONS (3)
  - COUGH [None]
  - DRY THROAT [None]
  - THROAT IRRITATION [None]
